FAERS Safety Report 9691912 (Version 1)
Quarter: 2013Q4

REPORT INFORMATION
  Report Type: Spontaneous
  Country: US (occurrence: US)
  Receive Date: 20131117
  Receipt Date: 20131117
  Transmission Date: 20140711
  Serious: Yes (Other)
  Sender: FDA-Public Use
  Company Number: US-ROCHE-1301258

PATIENT
  Sex: Female

DRUGS (3)
  1. XELODA [Suspect]
     Indication: PRODUCT USED FOR UNKNOWN INDICATION
     Route: 065
  2. MITOMYCIN [Concomitant]
  3. 5-FLUOROURACIL [Concomitant]

REACTIONS (2)
  - Cardiac disorder [Unknown]
  - Cardiomyopathy [Unknown]
